FAERS Safety Report 9213995 (Version 1)
Quarter: 2013Q2

REPORT INFORMATION
  Report Type: Spontaneous
  Country: US (occurrence: US)
  Receive Date: 20130405
  Receipt Date: 20130405
  Transmission Date: 20140414
  Serious: Yes (Other)
  Sender: FDA-Public Use
  Company Number: US-PFIZER INC-2013107231

PATIENT
  Sex: 0

DRUGS (1)
  1. XELJANZ [Suspect]
     Dosage: UNK

REACTIONS (3)
  - Hepatitis B surface antibody [Unknown]
  - Hepatitis B core antibody [Unknown]
  - Hepatitis A antibody [Unknown]
